FAERS Safety Report 16555970 (Version 1)
Quarter: 2019Q3

REPORT INFORMATION
  Report Type: Spontaneous
  Country: MX (occurrence: MX)
  Receive Date: 20190710
  Receipt Date: 20190710
  Transmission Date: 20191004
  Serious: Yes (Hospitalization, Other)
  Sender: FDA-Public Use
  Company Number: MX-PFIZER INC-2019221591

PATIENT
  Age: 76 Year
  Sex: Female
  Weight: 77 kg

DRUGS (10)
  1. METOPROLOL. [Concomitant]
     Active Substance: METOPROLOL
     Dosage: UNK UNK, UNK
     Route: 048
     Dates: start: 2003
  2. EXELON [Concomitant]
     Active Substance: RIVASTIGMINE TARTRATE
     Indication: CEREBRAL INFARCTION
  3. CLOPIDOGREL BISULFATE. [Suspect]
     Active Substance: CLOPIDOGREL BISULFATE
     Dosage: 1 DF, UNK
     Route: 048
     Dates: start: 2013
  4. ASPIRIN PROTECT [Concomitant]
     Active Substance: ASPIRIN
     Dosage: 1 DF, QD
     Route: 048
     Dates: start: 201809
  5. TELMISARTAN. [Concomitant]
     Active Substance: TELMISARTAN
     Dosage: 80 MG, UNK
     Route: 048
     Dates: start: 1998
  6. AMIODARONE HCL [Suspect]
     Active Substance: AMIODARONE HYDROCHLORIDE
     Dosage: 200 MG, UNK
     Route: 048
     Dates: start: 1998
  7. EXELON [Concomitant]
     Active Substance: RIVASTIGMINE TARTRATE
     Indication: DEMENTIA ALZHEIMER^S TYPE
     Dosage: PATCH 1/2 OF A PATCH/24 HOURS
     Route: 058
     Dates: start: 201808
  8. EXELON [Concomitant]
     Active Substance: RIVASTIGMINE TARTRATE
     Indication: CENTRAL NERVOUS SYSTEM NECROSIS
  9. ATORVASTATIN [Concomitant]
     Active Substance: ATORVASTATIN
     Indication: HYPERTENSION
     Dosage: 20 MG, Q12H
     Route: 048
     Dates: start: 1998
  10. EXELON [Concomitant]
     Active Substance: RIVASTIGMINE TARTRATE
     Indication: CEREBROVASCULAR DISORDER
     Dosage: 0.5 DF, QD (9.5 MG, PATCH 10 (CM2));)
     Route: 062
     Dates: start: 201809

REACTIONS (7)
  - Pneumonia [Unknown]
  - Headache [Recovered/Resolved]
  - Heart rate decreased [Recovered/Resolved]
  - Headache [Unknown]
  - Chest pain [Recovered/Resolved]
  - Heart rate increased [Unknown]
  - Chest pain [Recovered/Resolved]

NARRATIVE: CASE EVENT DATE: 20181212
